FAERS Safety Report 7773741-6 (Version None)
Quarter: 2011Q3

REPORT INFORMATION
  Report Type: 
  Country: None (occurrence: None)
  Receive Date: 20110920
  Receipt Date: 20110908
  Transmission Date: 20111222
  Serious: Yes (Death, Other)
  Sender: FDA-Public Use
  Company Number: UTC-008657

PATIENT
  Age: 39 Year
  Sex: Male
  Weight: 55.9 kg

DRUGS (5)
  1. TRACLEER [Concomitant]
  2. DIURETICS (DIURETICS) [Concomitant]
  3. COUMADIN [Concomitant]
  4. REVATIO [Concomitant]
  5. REMODULIN [Suspect]
     Indication: COR PULMONALE CHRONIC
     Dosage: 144 UG/KG (0.1 UG/KG, 1 IN 1 MIN), SUBCUTANEOUS
     Route: 058
     Dates: start: 20091030

REACTIONS (2)
  - LUNG DISORDER [None]
  - SCLERODERMA [None]
